FAERS Safety Report 6574445-8 (Version None)
Quarter: 2010Q1

REPORT INFORMATION
  Report Type: 
  Country: None (occurrence: None)
  Receive Date: 20100209
  Receipt Date: 20090612
  Transmission Date: 20100710
  Serious: No
  Sender: FDA-Public Use
  Company Number: A0791221A

PATIENT
  Age: 45 Year
  Sex: Female

DRUGS (5)
  1. PAROXETINE HCL [Suspect]
     Dosage: 30MG PER DAY
     Route: 048
     Dates: start: 20090301
  2. ATIVAN [Concomitant]
  3. MAGNESIUM [Concomitant]
  4. M.V.I. [Concomitant]
  5. VITAMIN E [Concomitant]

REACTIONS (1)
  - DRUG INEFFECTIVE [None]
